FAERS Safety Report 17816214 (Version 1)
Quarter: 2020Q2

REPORT INFORMATION
  Report Type: Spontaneous
  Country: GB (occurrence: GB)
  Receive Date: 20200522
  Receipt Date: 20200522
  Transmission Date: 20200714
  Serious: Yes (Death, Other)
  Sender: FDA-Public Use
  Company Number: GB-PFIZER INC-2020198856

PATIENT
  Age: 33 Year
  Sex: Male

DRUGS (1)
  1. METHOTREXATE SODIUM. [Suspect]
     Active Substance: METHOTREXATE SODIUM
     Indication: PSORIASIS
     Dosage: UNK

REACTIONS (10)
  - Suspected COVID-19 [Fatal]
  - Dyspnoea [Fatal]
  - Chills [Fatal]
  - Decreased appetite [Fatal]
  - Pallor [Fatal]
  - Pyrexia [Fatal]
  - Chest pain [Fatal]
  - Pleurisy [Fatal]
  - Cough [Fatal]
  - Ill-defined disorder [Fatal]
